FAERS Safety Report 8552035-5 (Version None)
Quarter: 2012Q3

REPORT INFORMATION
  Report Type: 
  Country: None (occurrence: None)
  Receive Date: 20120731
  Receipt Date: 20120716
  Transmission Date: 20120928
  Serious: Yes (Hospitalization)
  Sender: FDA-Public Use
  Company Number: SE-AMGEN-SWESP2012038113

PATIENT
  Age: 71 Year
  Sex: Male

DRUGS (6)
  1. ETANERCEPT [Suspect]
     Dosage: 50 MG, WEEKLY
     Route: 058
     Dates: end: 20110913
  2. METHOTREXATE SODIUM [Concomitant]
     Dosage: 10 MG/ML, PRE-FILLED SYRING
  3. OPTINATE COMBI D [Concomitant]
     Dosage: UNK
  4. ETANERCEPT [Suspect]
     Indication: RHEUMATOID ARTHRITIS
     Dosage: 50 MG, WEEKLY
     Route: 058
     Dates: start: 20101103, end: 20111127
  5. METHOTREXATE SODIUM [Concomitant]
     Dosage: 10 MG/ML, UNK
  6. PREDNISOLONE [Concomitant]
     Dosage: UNK

REACTIONS (1)
  - PLEURISY [None]
